FAERS Safety Report 25199690 (Version 1)
Quarter: 2025Q2

REPORT INFORMATION
  Report Type: Spontaneous
  Country: US (occurrence: None)
  Receive Date: 20250415
  Receipt Date: 20250415
  Transmission Date: 20250716
  Serious: Yes (Other)
  Sender: FDA-CTU
  Company Number: None

PATIENT
  Age: 76 Year
  Sex: Female
  Weight: 49.44 kg

DRUGS (12)
  1. BROMFENAC\MOXIFLOXACIN\PREDNISOLONE 21-PHOSPHATE [Suspect]
     Active Substance: BROMFENAC\MOXIFLOXACIN\PREDNISOLONE 21-PHOSPHATE
     Indication: Cataract operation
     Route: 050
     Dates: start: 20250322, end: 20250420
  2. VITAMIN B6 [Concomitant]
     Active Substance: PYRIDOXINE HYDROCHLORIDE
  3. VITAMIN C [Concomitant]
     Active Substance: ASCORBIC ACID
  4. CALCIUM [Concomitant]
     Active Substance: CALCIUM
  5. VITAMIN E [Concomitant]
     Active Substance: .ALPHA.-TOCOPHEROL
  6. FISH OIL [Concomitant]
     Active Substance: FISH OIL
  7. Multivitamin (Senior) [Concomitant]
  8. DIETARY SUPPLEMENT [Concomitant]
     Active Substance: DIETARY SUPPLEMENT
  9. Estriodol-dryness [Concomitant]
  10. Sodium fluoride-tooth sensitivity [Concomitant]
  11. Timolol-R+eye only [Concomitant]
  12. Tretinoin-acne roseaca [Concomitant]

REACTIONS (3)
  - Vulvovaginal pruritus [None]
  - Candida infection [None]
  - Discomfort [None]

NARRATIVE: CASE EVENT DATE: 20250327
